FAERS Safety Report 4429815-0 (Version None)
Quarter: 2004Q3

REPORT INFORMATION
  Report Type: 
  Country: None (occurrence: None)
  Receive Date: 20040817
  Receipt Date: 20040802
  Transmission Date: 20050211
  Serious: Yes (Hospitalization)
  Sender: FDA-Public Use
  Company Number: 04P-163-0269111-00

PATIENT
  Age: 78 Year
  Sex: Female
  Weight: 54.4316 kg

DRUGS (7)
  1. HUMIRA [Suspect]
     Indication: RHEUMATOID ARTHRITIS
     Dosage: 40 MG, 1 IN 2 WK, SUBCUTANEOUS
     Route: 058
     Dates: start: 20030101, end: 20040701
  2. BUCINDOLOL HYDROCHLORIDE [Concomitant]
  3. DETROL LA [Concomitant]
  4. FOLIC ACID [Concomitant]
  5. RISEDRONATE SODIUM [Concomitant]
  6. PAROXETINE HYDROCHLORIDE [Concomitant]
  7. METHOTREXATE [Concomitant]

REACTIONS (5)
  - CHEST X-RAY ABNORMAL [None]
  - DYSPNOEA [None]
  - FALL [None]
  - LACERATION [None]
  - LUNG DISORDER [None]
